FAERS Safety Report 23388087 (Version 3)
Quarter: 2024Q1

REPORT INFORMATION
  Report Type: Spontaneous
  Country: US (occurrence: US)
  Receive Date: 20240110
  Receipt Date: 20240117
  Transmission Date: 20240410
  Serious: Yes (Hospitalization, Other)
  Sender: FDA-Public Use
  Company Number: US-BRISTOL-MYERS SQUIBB COMPANY-2024-004185

PATIENT
  Age: 65 Year
  Sex: Male
  Weight: 76.9 kg

DRUGS (2)
  1. POMALYST [Suspect]
     Active Substance: POMALIDOMIDE
     Indication: Plasma cell myeloma
     Dosage: FREQUENCY: ONE CAPSULE FOR 21 DAYS.
     Route: 048
     Dates: start: 20240103
  2. LISINOPRIL [Concomitant]
     Active Substance: LISINOPRIL
     Indication: Product used for unknown indication
     Route: 048

REACTIONS (4)
  - Pruritus [Unknown]
  - Rash erythematous [Unknown]
  - Swelling [Unknown]
  - Pharyngeal swelling [Unknown]
